FAERS Safety Report 26125653 (Version 1)
Quarter: 2025Q4

REPORT INFORMATION
  Report Type: Report from Study
  Country: CN (occurrence: CN)
  Receive Date: 20251205
  Receipt Date: 20251205
  Transmission Date: 20260118
  Serious: Yes (Other)
  Sender: ROCHE
  Company Number: CN-ROCHE-10000446288

PATIENT

DRUGS (5)
  1. CROVALIMAB [Suspect]
     Active Substance: CROVALIMAB
     Indication: Paroxysmal nocturnal haemoglobinuria
     Route: 042
  2. CROVALIMAB [Suspect]
     Active Substance: CROVALIMAB
     Dosage: FROM WEEK 5, ONCE EVERY 4 WEEKS
     Route: 058
  3. CROVALIMAB [Suspect]
     Active Substance: CROVALIMAB
     Dosage: ON DAY 2 OF WEEK 1; AND ON WEEK 2.3.4
     Route: 058
  4. ECULIZUMAB [Suspect]
     Active Substance: ECULIZUMAB
     Indication: Paroxysmal nocturnal haemoglobinuria
     Route: 042
  5. ECULIZUMAB [Suspect]
     Active Substance: ECULIZUMAB
     Route: 042

REACTIONS (12)
  - Urinary tract infection [Unknown]
  - Upper respiratory tract infection [Unknown]
  - Enteritis infectious [Unknown]
  - Biliary tract infection [Unknown]
  - Pneumonia [Unknown]
  - Headache [Unknown]
  - Bilirubin conjugated increased [Unknown]
  - Rash [Unknown]
  - Blood alkaline phosphatase increased [Unknown]
  - Leukopenia [Unknown]
  - Neutropenia [Unknown]
  - Nausea [Unknown]
